FAERS Safety Report 7580590-0 (Version None)
Quarter: 2011Q2

REPORT INFORMATION
  Report Type: 
  Country: None (occurrence: None)
  Receive Date: 20110629
  Receipt Date: 20110523
  Transmission Date: 20111010
  Serious: Yes (Other)
  Sender: FDA-Public Use
  Company Number: B0722720A

PATIENT
  Sex: Male

DRUGS (2)
  1. VALTREX [Suspect]
     Indication: HERPES ZOSTER
     Dosage: 1000MG PER DAY
     Route: 048
     Dates: start: 20110523, end: 20110523
  2. ARASENA-A [Concomitant]
     Indication: HERPES ZOSTER
     Route: 061

REACTIONS (1)
  - PYREXIA [None]
